FAERS Safety Report 7413039-9 (Version None)
Quarter: 2011Q2

REPORT INFORMATION
  Report Type: 
  Country: None (occurrence: None)
  Receive Date: 20110413
  Receipt Date: 20110329
  Transmission Date: 20111010
  Serious: Yes (Hospitalization)
  Sender: FDA-Public Use
  Company Number: FR-GENENTECH-313591

PATIENT
  Sex: Female
  Weight: 55 kg

DRUGS (1)
  1. XOLAIR [Suspect]
     Indication: ASTHMA
     Dosage: 300 MG, Q15D
     Dates: start: 20080601, end: 20110201

REACTIONS (10)
  - HYPERTENSION [None]
  - HEADACHE [None]
  - WHEEZING [None]
  - SINUSITIS [None]
  - CONGENITAL SYPHILITIC OSTEOCHONDRITIS [None]
  - PRODUCTIVE COUGH [None]
  - WHITE BLOOD CELL COUNT INCREASED [None]
  - RENAL FAILURE [None]
  - ANAEMIA [None]
  - ANTIBODY TEST POSITIVE [None]
